FAERS Safety Report 9034643 (Version 1)
Quarter: 2013Q1

REPORT INFORMATION
  Report Type: Spontaneous
  Country: GB (occurrence: None)
  Receive Date: 20130115
  Receipt Date: 20130115
  Transmission Date: 20140127
  Serious: Yes (Other)
  Sender: FDA-Public Use
  Company Number: GB-DEXPHARM-20130002

PATIENT
  Age: 31 Year
  Sex: Male

DRUGS (2)
  1. OMEPRAZOLE [Suspect]
     Indication: DYSPEPSIA
     Route: 048
     Dates: start: 20121001, end: 20121002
  2. IBUPROFEN [Concomitant]

REACTIONS (6)
  - Rash [None]
  - Rash erythematous [None]
  - Malaise [None]
  - Eye pain [None]
  - Asthenia [None]
  - Photophobia [None]
